FAERS Safety Report 6817764-X (Version None)
Quarter: 2010Q3

REPORT INFORMATION
  Report Type: 
  Country: None (occurrence: None)
  Receive Date: 20100706
  Receipt Date: 20100702
  Transmission Date: 20110219
  Serious: Yes (Other)
  Sender: FDA-Public Use
  Company Number: GB-WYE-G06195710

PATIENT
  Sex: Male

DRUGS (1)
  1. RAPAMUNE [Suspect]
     Indication: KIDNEY TRANSPLANT REJECTION
     Dosage: UNKNOWN
     Dates: start: 20050101

REACTIONS (3)
  - DYSPNOEA [None]
  - LUNG DISORDER [None]
  - PNEUMONITIS [None]
